FAERS Safety Report 7292678-2 (Version None)
Quarter: 2011Q1

REPORT INFORMATION
  Report Type: 
  Country: None (occurrence: None)
  Receive Date: 20110215
  Receipt Date: 20110202
  Transmission Date: 20110831
  Serious: Yes (Other)
  Sender: FDA-Public Use
  Company Number: PHHY2009CA35608

PATIENT
  Sex: Female

DRUGS (4)
  1. SANDOSTATIN LAR [Suspect]
     Indication: PANCREATIC CARCINOMA
     Dosage: 20 MG EVERY 4 WEEKS
     Route: 030
     Dates: start: 20090727
  2. CHEMOTHERAPEUTICS NOS [Concomitant]
     Dosage: UNK
     Dates: start: 20091123
  3. SANDOSTATIN LAR [Suspect]
     Dosage: 20 MG, QMO
     Route: 030
  4. SANDOSTATIN LAR [Suspect]
     Dosage: 20 MG EVERY 4 WEEKS
     Route: 030
     Dates: start: 20090820

REACTIONS (12)
  - MUSCLE SPASMS [None]
  - PULMONARY OEDEMA [None]
  - NEOPLASM MALIGNANT [None]
  - DYSGEUSIA [None]
  - DYSPNOEA [None]
  - FATIGUE [None]
  - PULMONARY EMBOLISM [None]
  - TACHYCARDIA [None]
  - BLOOD GLUCOSE ABNORMAL [None]
  - SUPRAVENTRICULAR TACHYCARDIA [None]
  - BLOOD GLUCOSE INCREASED [None]
  - PAIN IN EXTREMITY [None]
